FAERS Safety Report 23482928 (Version 1)
Quarter: 2024Q1

REPORT INFORMATION
  Report Type: Spontaneous
  Country: CA (occurrence: CA)
  Receive Date: 20240205
  Receipt Date: 20240205
  Transmission Date: 20240409
  Serious: Yes (Hospitalization, Other)
  Sender: FDA-Public Use
  Company Number: CA-FRESENIUS KABI-FK202203334

PATIENT
  Age: 57 Year
  Sex: Female

DRUGS (3)
  1. LINEZOLID [Suspect]
     Active Substance: LINEZOLID
     Indication: Pathogen resistance
     Route: 042
  2. LINEZOLID [Suspect]
     Active Substance: LINEZOLID
     Indication: Arthritis infective
  3. LOSEC [Concomitant]
     Active Substance: OMEPRAZOLE
     Indication: Product used for unknown indication
     Dosage: DOSAGE FORM: CAPSULE, DELAYED RELEASE

REACTIONS (19)
  - Arthritis infective [Recovering/Resolving]
  - Hyperhidrosis [Recovering/Resolving]
  - Memory impairment [Recovering/Resolving]
  - Muscle spasms [Recovering/Resolving]
  - Palpitations [Recovering/Resolving]
  - Pathogen resistance [Recovering/Resolving]
  - Vertigo [Recovering/Resolving]
  - Abdominal pain [Recovering/Resolving]
  - Abdominal pain upper [Recovering/Resolving]
  - Confusional state [Recovering/Resolving]
  - Dizziness [Recovering/Resolving]
  - Dysphonia [Recovering/Resolving]
  - Haematochezia [Recovering/Resolving]
  - Heart rate irregular [Recovering/Resolving]
  - Hypertension [Recovering/Resolving]
  - Nausea [Recovering/Resolving]
  - Optic nerve injury [Recovering/Resolving]
  - Vision blurred [Recovering/Resolving]
  - Vomiting [Recovering/Resolving]
